FAERS Safety Report 6124272-0 (Version None)
Quarter: 2009Q1

REPORT INFORMATION
  Report Type: 
  Country: None (occurrence: None)
  Receive Date: 20090319
  Receipt Date: 20090312
  Transmission Date: 20090719
  Serious: Yes (Life-Threatening, Hospitalization, Other)
  Sender: FDA-Public Use
  Company Number: JP-ASTRAZENECA-2009SE00883

PATIENT
  Age: 4918 Day
  Sex: Male
  Weight: 52 kg

DRUGS (2)
  1. BLOPRESS [Suspect]
     Indication: INTENTIONAL OVERDOSE
     Route: 048
     Dates: start: 20090217, end: 20090217
  2. NORVASC [Suspect]
     Indication: INTENTIONAL OVERDOSE
     Route: 048
     Dates: start: 20090217, end: 20090217

REACTIONS (5)
  - HYPOTENSION [None]
  - HYPOTHERMIA [None]
  - INTENTIONAL OVERDOSE [None]
  - RENAL FAILURE ACUTE [None]
  - SUICIDE ATTEMPT [None]
